FAERS Safety Report 16444686 (Version 2)
Quarter: 2019Q3

REPORT INFORMATION
  Report Type: Other
  Country: CA (occurrence: CA)
  Receive Date: 20190618
  Receipt Date: 20190730
  Transmission Date: 20191004
  Serious: Yes (Other)
  Sender: FDA-Public Use
  Company Number: CA-APOTEX-2019AP016504

PATIENT
  Age: 37 Year
  Sex: Male

DRUGS (4)
  1. CIPROFLOXACIN. [Suspect]
     Active Substance: CIPROFLOXACIN
     Indication: ANORECTAL DISCOMFORT
     Dosage: UNK
     Route: 065
  2. CIPRO [Suspect]
     Active Substance: CIPROFLOXACIN HYDROCHLORIDE
     Indication: ANORECTAL DISCOMFORT
     Dosage: UNK
     Route: 065
  3. METRONIDAZOLE. [Suspect]
     Active Substance: METRONIDAZOLE
     Indication: ANORECTAL DISCOMFORT
     Dosage: UNK
     Route: 065
  4. AMOXI-CLAV [Concomitant]
     Active Substance: AMOXICILLIN\CLAVULANATE POTASSIUM
     Indication: ANORECTAL DISCOMFORT
     Dosage: UNK
     Route: 065

REACTIONS (7)
  - Aphthous ulcer [Unknown]
  - Condition aggravated [Unknown]
  - Drug hypersensitivity [Unknown]
  - Anal inflammation [Unknown]
  - Rectal haemorrhage [Unknown]
  - Anal abscess [Unknown]
  - Drug ineffective [Unknown]
